FAERS Safety Report 8840761 (Version 2)
Quarter: 2012Q4

REPORT INFORMATION
  Report Type: 
  Country: US (occurrence: US)
  Receive Date: 20121015
  Receipt Date: 20121120
  Transmission Date: 20130627
  Serious: Yes (Hospitalization)
  Sender: FDA-Public Use
  Company Number: US-009507513-1210USA001058

PATIENT
  Sex: Male

DRUGS (2)
  1. EMEND [Suspect]
     Indication: PROPHYLAXIS OF NAUSEA AND VOMITING
     Dosage: UNK
     Dates: end: 2012
  2. TYLENOL [Concomitant]
     Indication: PREMEDICATION
     Dosage: UNK
     Dates: end: 2012

REACTIONS (1)
  - Chest pain [Unknown]
